FAERS Safety Report 17847344 (Version 3)
Quarter: 2020Q3

REPORT INFORMATION
  Report Type: Spontaneous
  Country: US (occurrence: US)
  Receive Date: 20200601
  Receipt Date: 20200701
  Transmission Date: 20201103
  Serious: No
  Sender: FDA-Public Use
  Company Number: US-009507513-2005USA010026

PATIENT
  Age: 26 Year
  Sex: Female
  Weight: 91.61 kg

DRUGS (2)
  1. NEXPLANON [Suspect]
     Active Substance: ETONOGESTREL
     Dosage: ONE ROD, EVERY THREE YEARS
     Route: 059
     Dates: start: 20200528, end: 20200528
  2. NEXPLANON [Suspect]
     Active Substance: ETONOGESTREL
     Dosage: ONE ROD
     Route: 059
     Dates: start: 20200528

REACTIONS (3)
  - No adverse event [Unknown]
  - Product quality issue [Unknown]
  - Complication of device insertion [Recovered/Resolved]

NARRATIVE: CASE EVENT DATE: 20200528
